FAERS Safety Report 5483368-7 (Version None)
Quarter: 2007Q4

REPORT INFORMATION
  Report Type: 
  Country: None (occurrence: None)
  Receive Date: 20071012
  Receipt Date: 20070925
  Transmission Date: 20080405
  Serious: Yes (Other)
  Sender: FDA-Public Use
  Company Number: FR-JNJFOC-20070904891

PATIENT

DRUGS (1)
  1. LEVOFLOXACIN [Suspect]
     Indication: OBSTRUCTIVE CHRONIC BRONCHITIS WITH ACUTE EXACERBATION
     Route: 048

REACTIONS (2)
  - BRONCHITIS [None]
  - DYSPNOEA [None]
